FAERS Safety Report 6812815-0 (Version None)
Quarter: 2010Q3

REPORT INFORMATION
  Report Type: 
  Country: None (occurrence: None)
  Receive Date: 20100701
  Receipt Date: 20100624
  Transmission Date: 20110219
  Serious: Yes (Hospitalization)
  Sender: FDA-Public Use
  Company Number: B0663179A

PATIENT
  Sex: Male

DRUGS (18)
  1. TALAVIR [Suspect]
     Indication: HERPES ZOSTER
     Dosage: 3G PER DAY
     Route: 048
     Dates: start: 20100601, end: 20100607
  2. ACETAMINOPHEN [Concomitant]
  3. NORVASC [Concomitant]
     Route: 065
  4. PARIET [Concomitant]
     Route: 065
  5. OMNIC [Concomitant]
     Route: 065
  6. LASIX [Concomitant]
     Route: 065
  7. ZYLORIC [Concomitant]
     Route: 065
  8. TRIATEC [Concomitant]
     Route: 065
  9. ASPIRIN [Concomitant]
     Route: 065
  10. HUMULIN R [Concomitant]
     Route: 065
  11. UNKNOWN DRUG [Concomitant]
  12. KARVEA [Concomitant]
  13. UNKNOWN DRUG [Concomitant]
  14. CRESTOR [Concomitant]
  15. KAYEXALATE [Concomitant]
  16. ESKIM [Concomitant]
  17. BIDIABE [Concomitant]
  18. CONTRAMAL [Concomitant]

REACTIONS (3)
  - AGITATION [None]
  - DECREASED APPETITE [None]
  - DYSPEPSIA [None]
